FAERS Safety Report 19604069 (Version 5)
Quarter: 2022Q1

REPORT INFORMATION
  Report Type: Spontaneous
  Country: PT (occurrence: PT)
  Receive Date: 20210723
  Receipt Date: 20220103
  Transmission Date: 20220423
  Serious: Yes (Hospitalization, Other)
  Sender: FDA-Public Use
  Company Number: PT-AMGEN-PRTSP2021009928

PATIENT
  Age: 53 Year
  Sex: Female

DRUGS (8)
  1. ADALIMUMAB [Suspect]
     Active Substance: ADALIMUMAB
     Indication: Spondylitis
     Dosage: UNK
     Route: 065
  2. ADALIMUMAB [Suspect]
     Active Substance: ADALIMUMAB
     Indication: Enteropathic spondylitis
  3. REMICADE [Suspect]
     Active Substance: INFLIXIMAB
     Indication: Enteropathic spondylitis
     Dosage: UNK
     Route: 042
  4. INFLIXIMAB [Suspect]
     Active Substance: INFLIXIMAB
     Indication: Enteropathic spondylitis
     Dosage: UNK
     Route: 065
  5. SULFASALAZINE [Concomitant]
     Active Substance: SULFASALAZINE
     Indication: Product used for unknown indication
     Dosage: 2 GRAM, QD
     Route: 065
  6. DEFLAZACORT [Concomitant]
     Active Substance: DEFLAZACORT
     Indication: Spondylitis
     Dosage: 15 MILLIGRAM, QD
  7. DEFLAZACORT [Concomitant]
     Active Substance: DEFLAZACORT
     Dosage: 12 MILLIGRAM, QD, 12 UNK
  8. CELECOXIB [Concomitant]
     Active Substance: CELECOXIB
     Indication: Spondylitis
     Dosage: 100 MILLIGRAM, QD

REACTIONS (15)
  - Antineutrophil cytoplasmic antibody positive [Unknown]
  - Decreased appetite [Unknown]
  - Proteinuria [Unknown]
  - Granulomatosis with polyangiitis [Recovered/Resolved]
  - Glomerulonephritis rapidly progressive [Unknown]
  - Tubulointerstitial nephritis [Unknown]
  - Malaise [Unknown]
  - Spondylitis [Unknown]
  - Lung opacity [Unknown]
  - Sinusitis [Unknown]
  - Psoriasis [Unknown]
  - Microcytic anaemia [Recovered/Resolved]
  - Paradoxical psoriasis [Unknown]
  - Off label use [Unknown]
  - Product use in unapproved indication [Unknown]
